FAERS Safety Report 8919050 (Version 1)
Quarter: 2012Q4

REPORT INFORMATION
  Report Type: 
  Country: TH (occurrence: TH)
  Receive Date: 20121121
  Receipt Date: 20121121
  Transmission Date: 20130627
  Serious: Yes (Death, Life-Threatening, Hospitalization, Other)
  Sender: FDA-Public Use
  Company Number: TH-BAYER-2012-086843

PATIENT
  Sex: Male

DRUGS (1)
  1. NEXAVAR [Suspect]
     Indication: CARCINOMA HEPATOCELLULAR
     Dosage: Daily dose 800 mg
     Route: 048
     Dates: start: 201205, end: 20120822

REACTIONS (3)
  - Diarrhoea [None]
  - Blood pressure decreased [None]
  - Death [Fatal]
